FAERS Safety Report 17904463 (Version 1)
Quarter: 2020Q2

REPORT INFORMATION
  Report Type: Spontaneous
  Country: FR (occurrence: FR)
  Receive Date: 20200617
  Receipt Date: 20200617
  Transmission Date: 20200714
  Serious: Yes (Other)
  Sender: FDA-Public Use
  Company Number: NVSC2020FR166276

PATIENT
  Age: 40 Year
  Sex: Male

DRUGS (5)
  1. GANCICLOVIR. [Suspect]
     Active Substance: GANCICLOVIR
     Indication: HERPES SIMPLEX
     Dosage: 2 KG, QW (28 INJECTIONS, 2000 ?G/0.05 ML)
     Route: 031
  2. FOSCARNET [Suspect]
     Active Substance: FOSCARNET
     Indication: HERPES SIMPLEX
     Route: 042
  3. VALACICLOVIR [Suspect]
     Active Substance: VALACYCLOVIR HYDROCHLORIDE
     Indication: PRODUCT USED FOR UNKNOWN INDICATION
     Dosage: UNK
     Route: 048
  4. ACICLOVIR [Suspect]
     Active Substance: ACYCLOVIR
     Indication: HERPES SIMPLEX
     Dosage: 10 MG/KG, Q8H
     Route: 042
  5. ACETYLSALICYLIC ACID [Concomitant]
     Active Substance: ASPIRIN
     Indication: ANTIPLATELET THERAPY
     Dosage: 75 MG/DAY
     Route: 065

REACTIONS (3)
  - Product use in unapproved indication [Unknown]
  - Product use issue [Unknown]
  - Retinal detachment [Unknown]
